FAERS Safety Report 22064300 (Version 21)
Quarter: 2024Q4

REPORT INFORMATION
  Report Type: Spontaneous
  Country: CA (occurrence: CA)
  Receive Date: 20230306
  Receipt Date: 20241231
  Transmission Date: 20250115
  Serious: Yes (Other)
  Sender: CELLTRION
  Company Number: CA-CELLTRION INC.-2022CA020812

PATIENT

DRUGS (23)
  1. INFLECTRA [Suspect]
     Active Substance: INFLIXIMAB-DYYB
     Indication: Crohn^s disease
     Dosage: 5 MG/KG,  0, 2, 6, THEN EVERY 8 WEEKS
     Route: 042
     Dates: start: 20221117, end: 20230615
  2. INFLECTRA [Suspect]
     Active Substance: INFLIXIMAB-DYYB
     Dosage: 5 MG/KG,  0, 2, 6, THEN EVERY 8 WEEKS
     Route: 042
     Dates: start: 20221117, end: 20230615
  3. INFLECTRA [Suspect]
     Active Substance: INFLIXIMAB-DYYB
     Dosage: 338 MG, SUPPOSED TO RECEIVE 5 MG/KG
     Route: 042
     Dates: start: 20221201
  4. INFLECTRA [Suspect]
     Active Substance: INFLIXIMAB-DYYB
     Dosage: 5 MG/KG, 0, 2, 6, THEN EVERY 8 WEEKS
     Route: 042
     Dates: start: 20221229
  5. INFLECTRA [Suspect]
     Active Substance: INFLIXIMAB-DYYB
     Dosage: 352 MG, Q 0, 2, 6, THEN EVERY 8 WEEKS
     Route: 042
     Dates: start: 20230223
  6. INFLECTRA [Suspect]
     Active Substance: INFLIXIMAB-DYYB
     Dosage: 361 MG  0, 2, 6, THEN EVERY 8 WEEKS
     Route: 042
     Dates: start: 20230421
  7. INFLECTRA [Suspect]
     Active Substance: INFLIXIMAB-DYYB
     Dosage: 339.5 MG (5 MG/KG), EVERY 8 WEEKS
     Route: 042
     Dates: start: 20230615
  8. INFLECTRA [Suspect]
     Active Substance: INFLIXIMAB-DYYB
     Dosage: 334.5 MG (5 MG/KG), EVERY 6 WEEKS
     Route: 042
     Dates: start: 20230731
  9. INFLECTRA [Suspect]
     Active Substance: INFLIXIMAB-DYYB
     Dosage: 334.5 MG (5 MG/KG), EVERY 6 WEEKS
     Route: 042
     Dates: start: 20230907
  10. INFLECTRA [Suspect]
     Active Substance: INFLIXIMAB-DYYB
     Dosage: 346 MG (5MG/KG), EVERY 6 WEEKS
     Route: 042
     Dates: start: 20231019
  11. INFLECTRA [Suspect]
     Active Substance: INFLIXIMAB-DYYB
     Dosage: 342.5 MG (EVERY 6 WEEKS)
     Route: 042
     Dates: start: 20231130
  12. INFLECTRA [Suspect]
     Active Substance: INFLIXIMAB-DYYB
     Dosage: 371 MG (5 MG/KG), EVERY 6 WEEKS
     Route: 042
     Dates: start: 20240111
  13. INFLECTRA [Suspect]
     Active Substance: INFLIXIMAB-DYYB
     Dosage: 357 MG (5 MG/KG), AFTER 5 WEEKS AND 6 DAYS (PRESCRIBED EVERY 6 WEEKS)
     Route: 042
     Dates: start: 20240221
  14. INFLECTRA [Suspect]
     Active Substance: INFLIXIMAB-DYYB
     Dosage: 357 MG (5 MG/KG), AFTER 5 WEEKS AND 6 DAYS (PRESCRIBED EVERY 6 WEEKS)
     Route: 042
     Dates: start: 20240221
  15. INFLECTRA [Suspect]
     Active Substance: INFLIXIMAB-DYYB
     Dosage: 355 MG (5MG/KG), AFTER 6 WEEKS 1 DAY (PRESCRIBED EVERY 6 WEEKS)
     Route: 042
     Dates: start: 20240404
  16. INFLECTRA [Suspect]
     Active Substance: INFLIXIMAB-DYYB
     Dosage: 345 MG (5 MG/KG), AFTER 10 WEEKS (PRESCRIBED EVERY 6 WEEKS)
     Route: 042
     Dates: start: 20240613
  17. INFLECTRA [Suspect]
     Active Substance: INFLIXIMAB-DYYB
     Dosage: 345.5 MG (5 MG/KG), AFTER 6 WEEKS (PRESCRIBED EVERY 4 WEEK)
     Route: 042
     Dates: start: 20240718
  18. INFLECTRA [Suspect]
     Active Substance: INFLIXIMAB-DYYB
     Dosage: 340 MG (5MG/KG), AFTER 6 WEEKS 1 DAY (PRESCRIBED EVERY 4 WEEKS)
     Route: 042
     Dates: start: 20240830
  19. INFLECTRA [Suspect]
     Active Substance: INFLIXIMAB-DYYB
     Dosage: 340 MG (5 MG/KG), EVERY 4 WEEKS
     Route: 042
     Dates: start: 20240927
  20. INFLECTRA [Suspect]
     Active Substance: INFLIXIMAB-DYYB
     Dosage: 348 MG, AFTER 4 WEEKS (5 MG/KG, EVERY 4 WEEK)
     Route: 042
     Dates: start: 20241025
  21. INFLECTRA [Suspect]
     Active Substance: INFLIXIMAB-DYYB
     Dosage: 351 MG, 3 WEEKS 6 DAYS (5 MG/KG, EVERY 4 WEEKS)
     Route: 042
     Dates: start: 20241121
  22. INFLECTRA [Suspect]
     Active Substance: INFLIXIMAB-DYYB
     Dosage: 355 MG(5MG/KG), EVERY 4 WEEKS
     Route: 042
     Dates: start: 20241223
  23. CIPROFLOXACIN [Concomitant]
     Active Substance: CIPROFLOXACIN
     Dosage: 500 MG, 2X/DAY

REACTIONS (17)
  - Crohn^s disease [Recovered/Resolved with Sequelae]
  - Fistula [Not Recovered/Not Resolved]
  - Therapeutic response shortened [Unknown]
  - Condition aggravated [Not Recovered/Not Resolved]
  - Oropharyngeal pain [Recovered/Resolved]
  - Pyrexia [Recovered/Resolved]
  - Cough [Recovered/Resolved]
  - Nasal congestion [Recovered/Resolved]
  - Nasopharyngitis [Recovered/Resolved]
  - Malaise [Recovered/Resolved]
  - Aphthous ulcer [Not Recovered/Not Resolved]
  - Anal fissure [Recovered/Resolved]
  - Swelling [Unknown]
  - Fistula discharge [Unknown]
  - Arthralgia [Recovered/Resolved]
  - Off label use [Unknown]
  - Inappropriate schedule of product administration [Unknown]

NARRATIVE: CASE EVENT DATE: 20221101
